FAERS Safety Report 5236072-4 (Version None)
Quarter: 2007Q1

REPORT INFORMATION
  Report Type: 
  Country: None (occurrence: None)
  Receive Date: 20061208
  Receipt Date: 20060602
  Transmission Date: 20070707
  Serious: Yes (Other)
  Sender: FDA-Public Use
  Company Number: 2006UW10581

PATIENT
  Sex: Female
  Weight: 61.234 kg

DRUGS (5)
  1. CRESTOR [Suspect]
     Dosage: 5 MG PO
     Route: 048
  2. CRESTOR [Suspect]
     Dosage: 20 MG ONCE PO
     Route: 048
     Dates: start: 20060601
  3. ASPIRIN [Concomitant]
  4. LOTENSIN [Concomitant]
  5. ACTONEL [Concomitant]

REACTIONS (3)
  - INCORRECT DOSE ADMINISTERED [None]
  - MEDICATION ERROR [None]
  - SOMNOLENCE [None]
